FAERS Safety Report 21033679 (Version 1)
Quarter: 2022Q3

REPORT INFORMATION
  Report Type: Spontaneous
  Country: FR (occurrence: FR)
  Receive Date: 20220701
  Receipt Date: 20220701
  Transmission Date: 20221027
  Serious: Yes (Hospitalization)
  Sender: FDA-Public Use
  Company Number: None

PATIENT
  Age: 93 Year
  Sex: Male
  Weight: 83 kg

DRUGS (11)
  1. PREDNISONE [Suspect]
     Active Substance: PREDNISONE
     Indication: Arthritis
     Dosage: 5 MILLIGRAM, QD (1-0-0)
     Route: 048
     Dates: start: 20201213, end: 20220419
  2. NICORANDIL [Suspect]
     Active Substance: NICORANDIL
     Indication: Cardiac disorder
     Dosage: 10 MILLIGRAM, QD (0.5-0-0.5)
     Route: 048
     Dates: start: 2020, end: 20220530
  3. TAMSULOSIN HYDROCHLORIDE [Concomitant]
     Active Substance: TAMSULOSIN HYDROCHLORIDE
     Indication: Prostatic disorder
     Dosage: 0.4 MILLIGRAM, QD (1-0-0 (LP))
     Route: 048
     Dates: start: 2017
  4. BISOPROLOL [Concomitant]
     Active Substance: BISOPROLOL
     Indication: Cardiac failure
     Dosage: 1.25 MILLIGRAM, QD (1-0-0)
     Route: 048
     Dates: start: 2015
  5. ELIQUIS [Concomitant]
     Active Substance: APIXABAN
     Indication: Atrial fibrillation
     Dosage: 5 MILLIGRAM, QD (1-0-1)
     Route: 048
     Dates: start: 20201213
  6. LYRICA [Concomitant]
     Active Substance: PREGABALIN
     Indication: Pain
     Dosage: 25 MILLIGRAM, QD (1-0-0)
     Route: 048
     Dates: start: 2020
  7. CANDESARTAN CILEXETIL [Concomitant]
     Active Substance: CANDESARTAN CILEXETIL
     Indication: Hypertension
     Dosage: 4 MILLIGRAM, QD (0-0-1)
     Route: 048
     Dates: start: 2015
  8. METFORMIN HYDROCHLORIDE [Concomitant]
     Active Substance: METFORMIN HYDROCHLORIDE
     Indication: Type 2 diabetes mellitus
     Dosage: 500 MILLIGRAM, QD (0-1-0)
     Route: 048
     Dates: start: 20201213
  9. FINASTERIDE [Concomitant]
     Active Substance: FINASTERIDE
     Indication: Prostatic disorder
     Dosage: 5 MILLIGRAM, QD (1-0-0)
     Route: 048
     Dates: start: 2017
  10. FUROSEMIDE [Concomitant]
     Active Substance: FUROSEMIDE
     Indication: Cardiac disorder
     Dosage: 40 MILLIGRAM, QD (1-0-0)
     Route: 048
     Dates: start: 2015
  11. PANTOPRAZOLE [Concomitant]
     Active Substance: PANTOPRAZOLE
     Dosage: 40 MILLIGRAM, QD (1-0-0)
     Route: 048
     Dates: start: 2015

REACTIONS (1)
  - Large intestine perforation [Recovering/Resolving]

NARRATIVE: CASE EVENT DATE: 20220519
